FAERS Safety Report 5564802-0 (Version None)
Quarter: 2007Q4

REPORT INFORMATION
  Report Type: 
  Country: None (occurrence: None)
  Receive Date: 20071218
  Receipt Date: 20071207
  Transmission Date: 20080405
  Serious: Yes (Hospitalization)
  Sender: FDA-Public Use
  Company Number: US-JNJFOC-20071202975

PATIENT
  Sex: Male
  Weight: 81.65 kg

DRUGS (4)
  1. FENTANYL TRANSDERMAL SYSTEM [Suspect]
     Indication: PAIN
     Route: 062
  2. DURAGESIC-100 [Suspect]
     Indication: PAIN
     Route: 062
  3. PREDNISONE [Concomitant]
     Indication: CHEMOTHERAPY
     Route: 048
  4. REVLIMID [Concomitant]
     Indication: CHEMOTHERAPY
     Route: 048

REACTIONS (6)
  - ACNE [None]
  - APPLICATION SITE ERYTHEMA [None]
  - APPLICATION SITE RASH [None]
  - DERMATITIS CONTACT [None]
  - DRUG INEFFECTIVE [None]
  - SPINAL COMPRESSION FRACTURE [None]
